FAERS Safety Report 24334055 (Version 5)
Quarter: 2025Q1

REPORT INFORMATION
  Report Type: Spontaneous
  Country: US (occurrence: US)
  Receive Date: 20240918
  Receipt Date: 20250324
  Transmission Date: 20250409
  Serious: No
  Sender: SANOFI AVENTIS
  Company Number: US-SA-2024SA266174

PATIENT
  Age: 27 Year
  Sex: Female

DRUGS (2)
  1. DUPIXENT [Suspect]
     Active Substance: DUPILUMAB
     Indication: Dermatitis atopic
     Dosage: 300MG, QOW
     Route: 058
  2. DOXYCYCLINE [Suspect]
     Active Substance: DOXYCYCLINE

REACTIONS (7)
  - Dry skin [Unknown]
  - Lip dry [Recovered/Resolved]
  - Lip erythema [Recovered/Resolved]
  - Lip pruritus [Recovered/Resolved]
  - Myalgia [Unknown]
  - Rash [Unknown]
  - Dry eye [Unknown]
